FAERS Safety Report 8510445-6 (Version None)
Quarter: 2012Q3

REPORT INFORMATION
  Report Type: 
  Country: None (occurrence: None)
  Receive Date: 20120715
  Receipt Date: 20120705
  Transmission Date: 20120928
  Serious: Yes (Life-Threatening)
  Sender: FDA-Public Use
  Company Number: IT-TEVA-346789ISR

PATIENT
  Sex: Female

DRUGS (1)
  1. OXALIPLATIN [Suspect]
     Dosage: 180 MILLIGRAM;
     Route: 042
     Dates: start: 20120612, end: 20120612

REACTIONS (4)
  - DYSLALIA [None]
  - PHARYNGEAL OEDEMA [None]
  - DYSPNOEA [None]
  - DYSKINESIA [None]
